FAERS Safety Report 20684308 (Version 1)
Quarter: 2022Q2

REPORT INFORMATION
  Report Type: Spontaneous
  Country: US (occurrence: None)
  Receive Date: 20220405
  Receipt Date: 20220405
  Transmission Date: 20220721
  Serious: Yes (Other)
  Sender: FDA-Public Use
  Company Number: None

PATIENT
  Age: 62 Year
  Sex: Female
  Weight: 117.48 kg

DRUGS (1)
  1. LEVOTHYROXINE [Suspect]
     Active Substance: LEVOTHYROXINE
     Indication: Hypothyroidism
     Dates: start: 20110810, end: 20111011

REACTIONS (3)
  - Product substitution issue [None]
  - Blood thyroid stimulating hormone increased [None]
  - Therapeutic response changed [None]

NARRATIVE: CASE EVENT DATE: 20111011
